FAERS Safety Report 6528040-7 (Version None)
Quarter: 2009Q4

REPORT INFORMATION
  Report Type: 
  Country: None (occurrence: None)
  Receive Date: 20091230
  Receipt Date: 20091216
  Transmission Date: 20100525
  Serious: Yes (Hospitalization)
  Sender: FDA-Public Use
  Company Number: PAR_03294_2009

PATIENT
  Sex: Female

DRUGS (3)
  1. IBUPROFEN [Suspect]
     Indication: BACK PAIN
     Dosage: (DF)
  2. ACETAMINOPHEN [Suspect]
     Indication: BACK PAIN
     Dosage: (DF)
  3. ANTIBIOTICS [Concomitant]

REACTIONS (5)
  - ASTHENIA [None]
  - DECREASED APPETITE [None]
  - FALL [None]
  - PYREXIA [None]
  - TUBULOINTERSTITIAL NEPHRITIS [None]
